FAERS Safety Report 8166851-5 (Version None)
Quarter: 2012Q1

REPORT INFORMATION
  Report Type: 
  Country: None (occurrence: None)
  Receive Date: 20120103
  Receipt Date: 20111107
  Transmission Date: 20120608
  Serious: No
  Sender: FDA-Public Use
  Company Number: AE-2011-002549

PATIENT
  Age: 41 Year
  Sex: Female
  Weight: 112.4921 kg

DRUGS (17)
  1. XANAX [Concomitant]
  2. AMBIEN [Concomitant]
  3. LASIX [Concomitant]
  4. REQUIP [Concomitant]
  5. RIBAVIRIN [Concomitant]
  6. GABAPENTIN [Concomitant]
  7. OXYBUTYNIN [Concomitant]
  8. NEXIUM [Concomitant]
  9. PROZAC [Concomitant]
  10. PEGASYS [Concomitant]
  11. INCIVEK [Suspect]
     Dosage: 2250 MG (750 MG, 3 IN 1 D), ORAL
     Route: 048
     Dates: start: 20110906
  12. FLEXERIL [Concomitant]
  13. VISTARIL [Concomitant]
  14. ASPIRIN [Concomitant]
  15. POTASSIUM CHLORIDE [Concomitant]
  16. ATENOLOL [Concomitant]
  17. SINGULAIR [Concomitant]

REACTIONS (2)
  - RASH [None]
  - CHOKING [None]
